FAERS Safety Report 14608396 (Version 2)
Quarter: 2018Q2

REPORT INFORMATION
  Report Type: Spontaneous
  Country: HU (occurrence: HU)
  Receive Date: 20180307
  Receipt Date: 20180511
  Transmission Date: 20180711
  Serious: Yes (Hospitalization, Other)
  Sender: FDA-Public Use
  Company Number: HU-ASTRAZENECA-2018SE25778

PATIENT
  Age: 55 Year
  Sex: Female

DRUGS (4)
  1. LETROZOLE. [Suspect]
     Active Substance: LETROZOLE
     Indication: BREAST CANCER METASTATIC
     Route: 065
     Dates: start: 20130301, end: 20160801
  2. FULVESTRANT. [Suspect]
     Active Substance: FULVESTRANT
     Indication: BREAST CANCER METASTATIC
     Route: 030
     Dates: start: 20150801, end: 20160401
  3. AFINITOR [Suspect]
     Active Substance: EVEROLIMUS
     Indication: BREAST CANCER METASTATIC
     Route: 065
     Dates: start: 20160419, end: 20160509
  4. EXEMESTANE. [Concomitant]
     Active Substance: EXEMESTANE
     Indication: BREAST CANCER METASTATIC
     Route: 065
     Dates: start: 20160419

REACTIONS (9)
  - Stomatitis [Recovered/Resolved]
  - Metastases to thorax [Unknown]
  - Malignant neoplasm progression [Unknown]
  - Carbohydrate antigen 15-3 increased [Unknown]
  - Vomiting [Recovered/Resolved]
  - Metastases to lymph nodes [Unknown]
  - Metastases to chest wall [Unknown]
  - Thrombocytopenia [Recovering/Resolving]
  - Abdominal pain [Recovered/Resolved]

NARRATIVE: CASE EVENT DATE: 20150801
